FAERS Safety Report 15795233 (Version 1)
Quarter: 2019Q1

REPORT INFORMATION
  Report Type: Spontaneous
  Country: AE (occurrence: AE)
  Receive Date: 20190107
  Receipt Date: 20190107
  Transmission Date: 20190417
  Serious: Yes (Other)
  Sender: FDA-Public Use
  Company Number: None

PATIENT
  Age: 6 Year
  Sex: Female
  Weight: 18.5 kg

DRUGS (3)
  1. MULTIVITAMINS [Concomitant]
     Active Substance: VITAMINS
  2. SINGULAIR [Suspect]
     Active Substance: MONTELUKAST SODIUM
     Indication: ASTHMA
     Dosage: ?          QUANTITY:1 TABLET(S);?
     Route: 048
     Dates: start: 20181121, end: 20181213
  3. FLUCTINASE [Concomitant]

REACTIONS (9)
  - Myalgia [None]
  - Depression [None]
  - Headache [None]
  - Nausea [None]
  - Tic [None]
  - Tremor [None]
  - Dyspnoea [None]
  - Abdominal pain [None]
  - Arthralgia [None]

NARRATIVE: CASE EVENT DATE: 20181213
